FAERS Safety Report 4293098-5 (Version None)
Quarter: 2004Q1

REPORT INFORMATION
  Report Type: 
  Country: None (occurrence: None)
  Receive Date: 20040212
  Receipt Date: 20021120
  Transmission Date: 20041129
  Serious: No
  Sender: FDA-Public Use
  Company Number: US-GLAXOSMITHKLINE-A0386972A

PATIENT
  Age: 47 Year
  Sex: Male
  Weight: 75 kg

DRUGS (3)
  1. PAXIL [Suspect]
     Indication: POST-TRAUMATIC STRESS DISORDER
     Dosage: 20MG PER DAY
     Route: 048
     Dates: start: 19990301, end: 20000301
  2. ROBAXIN [Concomitant]
     Indication: NECK PAIN
     Dosage: 500MG THREE TIMES PER DAY
     Route: 048
  3. CELEBREX [Concomitant]
     Dosage: 1TAB PER DAY
     Route: 048

REACTIONS (1)
  - SENSORY DISTURBANCE [None]
